FAERS Safety Report 5520116-6 (Version None)
Quarter: 2007Q4

REPORT INFORMATION
  Report Type: 
  Country: None (occurrence: None)
  Receive Date: 20071116
  Receipt Date: 20071107
  Transmission Date: 20080405
  Serious: Yes (Hospitalization)
  Sender: FDA-Public Use
  Company Number: DK-ABBOTT-07P-044-0423675-00

PATIENT
  Sex: Male
  Weight: 95.9 kg

DRUGS (5)
  1. TARKA [Suspect]
     Indication: HYPERTENSION
     Route: 048
     Dates: start: 20060509
  2. LEVOTHYROXINE SODIUM [Concomitant]
     Indication: HYPOTHYROIDISM
     Route: 048
     Dates: start: 19921214
  3. ROSUVASTATIN [Concomitant]
     Indication: HYPERCHOLESTEROLAEMIA
     Route: 048
     Dates: start: 20060509
  4. HJERDYL [Concomitant]
     Indication: HYPERTENSION
     Route: 048
     Dates: start: 20060509
  5. HJERDYL [Concomitant]
     Indication: HYPERCHOLESTEROLAEMIA

REACTIONS (4)
  - CHROMATURIA [None]
  - NEPHROLITHIASIS [None]
  - RENAL PAIN [None]
  - SCROTAL PAIN [None]
